FAERS Safety Report 23114246 (Version 1)
Quarter: 2023Q4

REPORT INFORMATION
  Report Type: Spontaneous
  Country: US (occurrence: None)
  Receive Date: 20231026
  Receipt Date: 20231026
  Transmission Date: 20240110
  Serious: No
  Sender: FDA-Public Use
  Company Number: None

PATIENT
  Age: 50 Year
  Sex: Female
  Weight: 112.5 kg

DRUGS (11)
  1. TOPIRAMATE [Suspect]
     Active Substance: TOPIRAMATE
     Indication: Seizure
     Dosage: OTHER QUANTITY : 60 TABLET(S);?FREQUENCY : EVERY 12 HOURS;?
     Route: 048
  2. LYRICA [Concomitant]
     Active Substance: PREGABALIN
  3. TOPIRAMATE [Concomitant]
     Active Substance: TOPIRAMATE
  4. LEVOTHYROXINE [Concomitant]
     Active Substance: LEVOTHYROXINE
  5. PROPRANOLOL [Concomitant]
     Active Substance: PROPRANOLOL HYDROCHLORIDE
  6. VALSARTAN [Concomitant]
     Active Substance: VALSARTAN
  7. ZYRTEC [Concomitant]
     Active Substance: CETIRIZINE HYDROCHLORIDE
  8. POTASSIUM [Concomitant]
     Active Substance: POTASSIUM
  9. TRULICITY [Concomitant]
     Active Substance: DULAGLUTIDE
  10. LATANOPROST [Concomitant]
     Active Substance: LATANOPROST
  11. DULOXETINE [Concomitant]
     Active Substance: DULOXETINE

REACTIONS (1)
  - Aphasia [None]

NARRATIVE: CASE EVENT DATE: 20220518
